FAERS Safety Report 17620870 (Version 1)
Quarter: 2020Q2

REPORT INFORMATION
  Report Type: Spontaneous
  Country: FR (occurrence: FR)
  Receive Date: 20200403
  Receipt Date: 20200403
  Transmission Date: 20200713
  Serious: Yes (Disabling)
  Sender: FDA-Public Use
  Company Number: FR-PFIZER INC-2020133084

PATIENT
  Age: 51 Year
  Sex: Female

DRUGS (1)
  1. AROMASINE [Suspect]
     Active Substance: EXEMESTANE
     Indication: BREAST CANCER FEMALE
     Dosage: 25 MG, DAILY
     Dates: start: 201808

REACTIONS (3)
  - Arthralgia [Unknown]
  - Pain in extremity [Unknown]
  - Musculoskeletal pain [Unknown]

NARRATIVE: CASE EVENT DATE: 2018
